FAERS Safety Report 25648494 (Version 3)
Quarter: 2025Q3

REPORT INFORMATION
  Report Type: Report from Study
  Country: CN (occurrence: CN)
  Receive Date: 20250806
  Receipt Date: 20250912
  Transmission Date: 20251021
  Serious: Yes (Other)
  Sender: ALEXION PHARMACEUTICALS
  Company Number: CN-ASTRAZENECA-202508GLO000997CN

PATIENT
  Age: 11 Year
  Sex: Male

DRUGS (12)
  1. SELUMETINIB [Suspect]
     Active Substance: SELUMETINIB
     Dosage: 30 MILLIGRAM, BID
     Route: 065
     Dates: start: 20241205, end: 20250121
  2. SELUMETINIB [Suspect]
     Active Substance: SELUMETINIB
     Dosage: 30 MILLIGRAM, QD
     Route: 065
     Dates: start: 20250124, end: 20250124
  3. SELUMETINIB [Suspect]
     Active Substance: SELUMETINIB
     Dosage: 30 MILLIGRAM, BID
     Route: 065
     Dates: start: 20250125
  4. CALCIUM CARBONATE\CHOLECALCIFEROL [Concomitant]
     Active Substance: CALCIUM CARBONATE\CHOLECALCIFEROL
     Dosage: UNK, QD
     Route: 065
     Dates: start: 202501
  5. PIPERAZINE BISFERULATE [Concomitant]
     Active Substance: PIPERAZINE BISFERULATE
     Dosage: UNK MG, BID
     Route: 065
     Dates: start: 20250801
  6. POVIDONE-IODINE [Concomitant]
     Active Substance: POVIDONE-IODINE
     Route: 065
     Dates: start: 20250703, end: 20250730
  7. POVIDONE-IODINE [Concomitant]
     Active Substance: POVIDONE-IODINE
     Route: 065
     Dates: start: 20250712, end: 20250731
  8. ERYTHROMYCIN [Concomitant]
     Active Substance: ERYTHROMYCIN
     Route: 065
     Dates: start: 20250712, end: 20250731
  9. TACROLIMUS [Concomitant]
     Active Substance: TACROLIMUS
     Dosage: UNK G, BID
     Route: 065
     Dates: start: 20250801
  10. CEFACLOR [Concomitant]
     Active Substance: CEFACLOR
     Dosage: UNK G, BID
     Route: 065
     Dates: start: 20250801
  11. MUPIROCIN [Concomitant]
     Active Substance: MUPIROCIN
     Dosage: UNK G, TID
     Route: 065
     Dates: start: 20250801
  12. Triamcinolone acetonide and econazole nitrate [Concomitant]
     Dosage: UNK G, BID
     Route: 065
     Dates: start: 20250801

REACTIONS (1)
  - Panniculitis [Not Recovered/Not Resolved]

NARRATIVE: CASE EVENT DATE: 20250701
